FAERS Safety Report 12670850 (Version 1)
Quarter: 2016Q3

REPORT INFORMATION
  Report Type: Spontaneous
  Country: US (occurrence: US)
  Receive Date: 20160822
  Receipt Date: 20160822
  Transmission Date: 20161109
  Serious: No
  Sender: FDA-Public Use
  Company Number: US-JAZZ-2016-US-006212

PATIENT
  Sex: Female

DRUGS (22)
  1. GRALISE [Concomitant]
     Active Substance: GABAPENTIN
  2. SYNTHROID [Concomitant]
     Active Substance: LEVOTHYROXINE SODIUM
  3. FOCALIN [Concomitant]
     Active Substance: DEXMETHYLPHENIDATE HYDROCHLORIDE
  4. PARLODEL [Concomitant]
     Active Substance: BROMOCRIPTINE MESYLATE
  5. NASONEX [Concomitant]
     Active Substance: MOMETASONE FUROATE
  6. GABAPENTIN. [Concomitant]
     Active Substance: GABAPENTIN
  7. DEXILANT [Concomitant]
     Active Substance: DEXLANSOPRAZOLE
  8. CELEBREX [Concomitant]
     Active Substance: CELECOXIB
  9. CLARITIN [Concomitant]
     Active Substance: LORATADINE
  10. CABERGOLINE. [Concomitant]
     Active Substance: CABERGOLINE
  11. XYREM [Suspect]
     Active Substance: SODIUM OXYBATE
     Indication: NARCOLEPSY
     Dosage: 2.25 G, BID
     Route: 048
     Dates: start: 201101, end: 201101
  12. ALPRAZOLAM. [Concomitant]
     Active Substance: ALPRAZOLAM
  13. DIAZEPAM. [Concomitant]
     Active Substance: DIAZEPAM
  14. LEVAQUIN [Concomitant]
     Active Substance: LEVOFLOXACIN
  15. ADDERALL [Concomitant]
     Active Substance: AMPHETAMINE ASPARTATE\AMPHETAMINE SULFATE\DEXTROAMPHETAMINE SACCHARATE\DEXTROAMPHETAMINE SULFATE
  16. XYREM [Suspect]
     Active Substance: SODIUM OXYBATE
     Indication: CATAPLEXY
     Dosage: DOSE ADJUSTMENTS
     Route: 048
  17. XYREM [Suspect]
     Active Substance: SODIUM OXYBATE
     Dosage: 3.75 G, QD
     Route: 048
     Dates: start: 201511
  18. PROVIGIL [Suspect]
     Active Substance: MODAFINIL
     Indication: PRODUCT USED FOR UNKNOWN INDICATION
  19. VICODIN [Concomitant]
     Active Substance: ACETAMINOPHEN\HYDROCODONE BITARTRATE
  20. LEXAPRO [Concomitant]
     Active Substance: ESCITALOPRAM OXALATE
  21. EFFEXOR [Concomitant]
     Active Substance: VENLAFAXINE HYDROCHLORIDE
  22. MIRENA [Concomitant]
     Active Substance: LEVONORGESTREL

REACTIONS (1)
  - Psychomotor hyperactivity [Not Recovered/Not Resolved]
